FAERS Safety Report 18658469 (Version 1)
Quarter: 2020Q4

REPORT INFORMATION
  Report Type: Spontaneous
  Country: GB (occurrence: GB)
  Receive Date: 20201223
  Receipt Date: 20201223
  Transmission Date: 20210114
  Serious: Yes (Other)
  Sender: FDA-Public Use
  Company Number: GB-TEVA-2020-GB-1862013

PATIENT
  Age: 68 Year
  Sex: Male
  Weight: 98.4 kg

DRUGS (2)
  1. DOXAZOSIN [Concomitant]
     Active Substance: DOXAZOSIN MESYLATE
     Dosage: EVERY DAY
     Dates: start: 20201120
  2. TAMSULOSIN [Suspect]
     Active Substance: TAMSULOSIN
     Route: 048

REACTIONS (2)
  - Erectile dysfunction [Recovered/Resolved]
  - Ejaculation disorder [Unknown]

NARRATIVE: CASE EVENT DATE: 20200930
